FAERS Safety Report 5979930-5 (Version None)
Quarter: 2008Q4

REPORT INFORMATION
  Report Type: 
  Country: None (occurrence: None)
  Receive Date: 20081205
  Receipt Date: 20081124
  Transmission Date: 20090506
  Serious: Yes (Life-Threatening, Other)
  Sender: FDA-Public Use
  Company Number: FR-JNJFOC-20080906552

PATIENT
  Sex: Male

DRUGS (8)
  1. PREZISTA [Suspect]
     Indication: HIV INFECTION
     Route: 048
  2. REBETOL [Suspect]
     Indication: DRUG USE FOR UNKNOWN INDICATION
  3. VIRAFERONPEG [Suspect]
     Indication: HEPATITIS C
     Route: 058
  4. RIBAVIRINE [Concomitant]
     Indication: DRUG USE FOR UNKNOWN INDICATION
  5. TRIFLUCAN [Concomitant]
     Indication: FUNGAL INFECTION
     Route: 048
  6. ZELITREX [Concomitant]
     Indication: OPPORTUNISTIC INFECTION PROPHYLAXIS
     Route: 048
  7. TRUVADA [Concomitant]
     Indication: HIV INFECTION
     Route: 048
  8. NORVIR [Concomitant]
     Indication: HIV INFECTION
     Route: 048

REACTIONS (2)
  - ANAEMIA [None]
  - THROMBOCYTOPENIA [None]
